FAERS Safety Report 8798075 (Version 3)
Quarter: 2012Q4

REPORT INFORMATION
  Report Type: Report from Study
  Country: US (occurrence: US)
  Receive Date: 20120920
  Receipt Date: 20121213
  Transmission Date: 20130627
  Serious: Yes (Other)
  Sender: FDA-Public Use
  Company Number: US-US-EMD SERONO, INC.-7160836

PATIENT
  Sex: Female
  Weight: 82 kg

DRUGS (7)
  1. REBIF [Suspect]
     Indication: RELAPSING-REMITTING MULTIPLE SCLEROSIS
     Route: 058
     Dates: start: 20090415
  2. VITAMIN C [Concomitant]
     Indication: PRODUCT USED FOR UNKNOWN INDICATION
  3. CYMBALTA [Concomitant]
     Indication: PAIN
  4. EFFEXOR [Concomitant]
     Indication: PAIN
  5. TEGRETOL [Concomitant]
     Indication: PAIN
  6. ZANAFLEX [Concomitant]
     Indication: MUSCLE SPASTICITY
  7. SENNA [Concomitant]
     Indication: CONSTIPATION

REACTIONS (10)
  - Vulval abscess [Recovering/Resolving]
  - Furuncle [Not Recovered/Not Resolved]
  - Aphasia [Not Recovered/Not Resolved]
  - Slow speech [Not Recovered/Not Resolved]
  - Nasal congestion [Not Recovered/Not Resolved]
  - Malaise [Not Recovered/Not Resolved]
  - Pain [Not Recovered/Not Resolved]
  - Arthralgia [Unknown]
  - Injection site pain [Not Recovered/Not Resolved]
  - Chills [Not Recovered/Not Resolved]
